FAERS Safety Report 9996228 (Version 1)
Quarter: 2014Q1

REPORT INFORMATION
  Report Type: Spontaneous
  Country: HU (occurrence: HU)
  Receive Date: 20140311
  Receipt Date: 20140311
  Transmission Date: 20141002
  Serious: Yes (Hospitalization)
  Sender: FDA-Public Use
  Company Number: HU-VERTEX PHARMACEUTICALS INC-2014-001163

PATIENT
  Age: 55 Year
  Sex: Female

DRUGS (5)
  1. INCIVO [Suspect]
     Indication: HEPATITIS C
     Dosage: 1125 MG, BID
     Dates: start: 20131206
  2. PEGASYS [Suspect]
     Indication: HEPATITIS C
     Dosage: 135 ?G, QW
     Route: 065
  3. PEGASYS [Suspect]
     Dosage: 180 ?G, QW
     Route: 065
  4. RIBAVIRIN [Suspect]
     Indication: HEPATITIS C
     Dosage: 600 MG, UNK
     Route: 065
  5. RIBAVIRIN [Suspect]
     Dosage: 1000 MG, UNK
     Route: 065

REACTIONS (5)
  - Hypoacusis [Unknown]
  - Face oedema [Unknown]
  - Oedema peripheral [Unknown]
  - Asthenia [Unknown]
  - Anaemia [Unknown]
